FAERS Safety Report 17288647 (Version 2)
Quarter: 2020Q1

REPORT INFORMATION
  Report Type: Spontaneous
  Country: US (occurrence: US)
  Receive Date: 20200120
  Receipt Date: 20200204
  Transmission Date: 20200409
  Serious: Yes (Life-Threatening, Hospitalization, Other)
  Sender: FDA-Public Use
  Company Number: US-PFIZER INC-2020022855

PATIENT
  Age: 75 Year
  Sex: Female
  Weight: 72.52 kg

DRUGS (2)
  1. CELEBREX [Suspect]
     Active Substance: CELECOXIB
     Indication: ARTHRITIS
     Dosage: 100 MG, 2X/DAY
     Dates: start: 201812
  2. CELEBREX [Suspect]
     Active Substance: CELECOXIB
     Indication: ARTHRALGIA
     Dosage: 1-20 MG
     Dates: start: 20200116

REACTIONS (10)
  - Pruritus [Recovered/Resolved]
  - Solar dermatitis [Recovered/Resolved]
  - Cardiac arrest [Recovered/Resolved]
  - Lip swelling [Recovered/Resolved]
  - Loss of consciousness [Recovered/Resolved]
  - Fatigue [Recovered/Resolved]
  - Intentional product misuse [Unknown]
  - Dizziness [Recovered/Resolved]
  - Headache [Recovered/Resolved]
  - Expired product administered [Unknown]

NARRATIVE: CASE EVENT DATE: 201910
